FAERS Safety Report 5113508-0 (Version None)
Quarter: 2006Q3

REPORT INFORMATION
  Report Type: 
  Country: None (occurrence: None)
  Receive Date: 20060921
  Receipt Date: 20060908
  Transmission Date: 20061208
  Serious: Yes (Other)
  Sender: FDA-Public Use
  Company Number: 2006110268

PATIENT
  Age: 44 Year
  Sex: Female

DRUGS (2)
  1. DILANTIN [Suspect]
     Dates: start: 20041001, end: 20041001
  2. VASOTEC [Concomitant]

REACTIONS (2)
  - OPEN ANGLE GLAUCOMA [None]
  - STEVENS-JOHNSON SYNDROME [None]
